FAERS Safety Report 9743046 (Version 3)
Quarter: 2014Q1

REPORT INFORMATION
  Report Type: Spontaneous
  Country: CN (occurrence: CN)
  Receive Date: 20131210
  Receipt Date: 20140106
  Transmission Date: 20141002
  Serious: Yes (Other)
  Sender: FDA-Public Use
  Company Number: CN-B.I. PHARMACEUTICALS,INC./RIDGEFIELD-2013-BI-36579YA

PATIENT
  Age: 26 Year
  Sex: Male

DRUGS (2)
  1. TAMSULOSIN [Suspect]
     Indication: PROSTATITIS
     Dosage: 0.2 MG
     Route: 048
  2. NINGMITAI (HERBAL EXTRACT) [Concomitant]

REACTIONS (6)
  - Intraocular pressure increased [Recovered/Resolved]
  - Rash [Recovered/Resolved]
  - Eye pain [Recovered/Resolved]
  - Conjunctival hyperaemia [Recovered/Resolved]
  - Vision blurred [Recovered/Resolved]
  - Off label use [Not Recovered/Not Resolved]
